FAERS Safety Report 6696034-7 (Version None)
Quarter: 2010Q2

REPORT INFORMATION
  Report Type: 
  Country: None (occurrence: None)
  Receive Date: 20100426
  Receipt Date: 20100409
  Transmission Date: 20101027
  Serious: Yes (Other)
  Sender: FDA-Public Use
  Company Number: AU-BAYER-201021886GPV

PATIENT
  Age: 50 Year
  Sex: Male

DRUGS (3)
  1. FLUDARABINE [Suspect]
     Indication: STEM CELL TRANSPLANT
  2. CYTARABINE [Suspect]
     Indication: STEM CELL TRANSPLANT
  3. TACROLIMUS [Concomitant]

REACTIONS (8)
  - BLOOD CREATININE INCREASED [None]
  - CHRONIC GRAFT VERSUS HOST DISEASE [None]
  - CONVULSION [None]
  - DEVICE RELATED SEPSIS [None]
  - HAEMOGLOBIN DECREASED [None]
  - PLATELET COUNT DECREASED [None]
  - RED BLOOD CELL SCHISTOCYTES PRESENT [None]
  - THROMBOTIC MICROANGIOPATHY [None]
